FAERS Safety Report 21740415 (Version 1)
Quarter: 2022Q4

REPORT INFORMATION
  Report Type: Spontaneous
  Country: FR (occurrence: FR)
  Receive Date: 20221216
  Receipt Date: 20221216
  Transmission Date: 20230113
  Serious: No
  Sender: FDA-Public Use
  Company Number: None

PATIENT
  Age: 37 Year
  Sex: Male

DRUGS (6)
  1. OLANZAPINE [Suspect]
     Active Substance: OLANZAPINE
     Indication: Bipolar disorder
     Dosage: UNK, UNKNOWN
     Route: 048
     Dates: start: 202206
  2. LOXAPINE [Suspect]
     Active Substance: LOXAPINE
     Indication: Psychotic disorder
     Dosage: 150 MG, UNKNOWN
     Route: 048
     Dates: start: 202109
  3. PIPAMPERONE [Suspect]
     Active Substance: PIPAMPERONE
     Indication: Psychotic disorder
     Dosage: 120 MG, UNKNOWN
     Route: 048
     Dates: start: 202109
  4. VALPROATE SODIUM [Suspect]
     Active Substance: VALPROATE SODIUM
     Indication: Psychotic disorder
     Dosage: 2000 MG, UNKNOWN
     Route: 048
     Dates: start: 202209
  5. DEPAKOTE [Suspect]
     Active Substance: DIVALPROEX SODIUM
     Indication: Psychotic disorder
     Dosage: 1000 MG, UNKNOWN
     Route: 048
     Dates: start: 201708
  6. CLOBAZAM [Suspect]
     Active Substance: CLOBAZAM
     Indication: Psychotic disorder
     Dosage: 5 MG, UNKNOWN
     Route: 048
     Dates: start: 202109

REACTIONS (2)
  - Thrombocytopenia [Not Recovered/Not Resolved]
  - Overdose [Not Recovered/Not Resolved]

NARRATIVE: CASE EVENT DATE: 20220701
